FAERS Safety Report 6358625-2 (Version None)
Quarter: 2009Q3

REPORT INFORMATION
  Report Type: 
  Country: None (occurrence: None)
  Receive Date: 20090914
  Receipt Date: 20090826
  Transmission Date: 20100115
  Serious: Yes (Other)
  Sender: FDA-Public Use
  Company Number: ADE#09-109

PATIENT
  Age: 19 Year
  Sex: Male

DRUGS (1)
  1. MIDRIN CAPSULES MANUFACTURED BY CARACO PHARMA. [Suspect]
     Indication: MIGRAINE
     Dates: start: 20090801

REACTIONS (3)
  - CONDITION AGGRAVATED [None]
  - EDUCATIONAL PROBLEM [None]
  - HEADACHE [None]
